FAERS Safety Report 6589657-7 (Version None)
Quarter: 2010Q1

REPORT INFORMATION
  Report Type: 
  Country: None (occurrence: None)
  Receive Date: 20100219
  Receipt Date: 20100209
  Transmission Date: 20100710
  Serious: Yes (Death, Hospitalization)
  Sender: FDA-Public Use
  Company Number: US-JNJCH-2009031634

PATIENT
  Age: 3 Month

DRUGS (1)
  1. ACETYLSALICYLIC ACID [Suspect]
     Indication: NASOPHARYNGITIS
     Dosage: TEXT:1625-1950 MG IN 35 HR
     Route: 048

REACTIONS (2)
  - THERAPEUTIC AGENT TOXICITY [None]
  - WRONG DRUG ADMINISTERED [None]
